FAERS Safety Report 5676878-0 (Version None)
Quarter: 2008Q1

REPORT INFORMATION
  Report Type: 
  Country: None (occurrence: None)
  Receive Date: 20080318
  Receipt Date: 20080304
  Transmission Date: 20080703
  Serious: Yes (Disabling)
  Sender: FDA-Public Use
  Company Number: 2008000491

PATIENT
  Age: 75 Year
  Sex: Male

DRUGS (12)
  1. ERLOTINIB (ERLOTINIB HCL) (ERLOTINIB HCL) [Suspect]
     Indication: LUNG ADENOCARCINOMA
     Dosage: 150 MG QD ORAL
     Route: 048
     Dates: start: 20080105
  2. DECADRON [Suspect]
     Dosage: 1 MG QD ORAL
     Route: 048
  3. POLYFUL [Concomitant]
  4. EURODIN (ESTAZOLAM) [Concomitant]
  5. FAMOTIDINE [Concomitant]
  6. DAI-KENCHU-TO [Concomitant]
  7. DOMPERIDONE (DOMPERIDONE) [Concomitant]
  8. GASMOTIN (MOSAPRIDE CITRATE) [Concomitant]
  9. MAGNESIUM OXIDE (MAGNESIUM OXIDE) [Concomitant]
  10. ZOLPIDEM [Concomitant]
  11. LASIX [Concomitant]
  12. ALDACTONE [Concomitant]

REACTIONS (2)
  - DISEASE PROGRESSION [None]
  - HYPOXIA [None]
